FAERS Safety Report 8645085 (Version 3)
Quarter: 2013Q2

REPORT INFORMATION
  Report Type: Spontaneous
  Country: AU (occurrence: AU)
  Receive Date: 20120702
  Receipt Date: 20130517
  Transmission Date: 20140414
  Serious: Yes (Disabling, Other)
  Sender: FDA-Public Use
  Company Number: PHHY2012AU055498

PATIENT
  Age: 65 Year
  Sex: Female

DRUGS (5)
  1. FEMARA [Suspect]
     Indication: BREAST CANCER
     Dosage: UNK UKN, UNK
     Route: 048
     Dates: start: 201106
  2. FEMARA [Suspect]
     Dosage: UNK UKN, UNK
     Route: 048
  3. COVERSYL [Concomitant]
     Dosage: 10 MG, QD
     Route: 048
  4. METFORMIN [Concomitant]
     Dosage: 500 MG, BID
     Route: 048
  5. NEXIUM [Concomitant]
     Dosage: 20 MG, PER DAY
     Route: 048

REACTIONS (10)
  - Eye disorder [Recovered/Resolved]
  - Eye swelling [Recovered/Resolved]
  - Erythema of eyelid [Recovered/Resolved]
  - Vision blurred [Recovered/Resolved]
  - Generalised erythema [Recovered/Resolved]
  - Headache [Recovered/Resolved]
  - Dizziness [Recovered/Resolved]
  - Dry skin [Recovered/Resolved]
  - Skin exfoliation [Recovered/Resolved]
  - Pruritus [Recovering/Resolving]
